FAERS Safety Report 13958945 (Version 1)
Quarter: 2017Q3

REPORT INFORMATION
  Report Type: Spontaneous
  Country: US (occurrence: US)
  Receive Date: 20170911
  Receipt Date: 20170911
  Transmission Date: 20171128
  Serious: Yes (Hospitalization, Other)
  Sender: FDA-Public Use
  Company Number: None

PATIENT
  Age: 59 Year
  Sex: Female
  Weight: 76.5 kg

DRUGS (5)
  1. VISTARIL [Concomitant]
     Active Substance: HYDROXYZINE PAMOATE
  2. VALIUM [Concomitant]
     Active Substance: DIAZEPAM
  3. NORCO [Concomitant]
     Active Substance: ACETAMINOPHEN\HYDROCODONE BITARTRATE
  4. VERSED [Suspect]
     Active Substance: MIDAZOLAM HYDROCHLORIDE
     Indication: NUCLEAR MAGNETIC RESONANCE IMAGING
     Dosage: ?          OTHER STRENGTH:UNKNOWN;QUANTITY:1 INJECTION(S);OTHER FREQUENCY:UNKNOWN;?
     Route: 042
     Dates: start: 20170907
  5. VERSED [Suspect]
     Active Substance: MIDAZOLAM HYDROCHLORIDE
     Indication: SEDATION
     Dosage: ?          OTHER STRENGTH:UNKNOWN;QUANTITY:1 INJECTION(S);OTHER FREQUENCY:UNKNOWN;?
     Route: 042
     Dates: start: 20170907

REACTIONS (7)
  - Diplopia [None]
  - Paranoia [None]
  - Documented hypersensitivity to administered product [None]
  - Violence-related symptom [None]
  - Hallucination [None]
  - Drug hypersensitivity [None]
  - Vision blurred [None]

NARRATIVE: CASE EVENT DATE: 20170907
